FAERS Safety Report 8043534-3 (Version None)
Quarter: 2012Q1

REPORT INFORMATION
  Report Type: 
  Country: None (occurrence: None)
  Receive Date: 20120112
  Receipt Date: 20120103
  Transmission Date: 20120608
  Serious: Yes (Other)
  Sender: FDA-Public Use
  Company Number: BR-PFIZER INC-2012002016

PATIENT
  Sex: Male

DRUGS (3)
  1. DIAMOX SRC [Concomitant]
     Dosage: 250
  2. XALATAN [Suspect]
     Dosage: 1.5 UG, 2X/DAY (1 DROP 2X/DAY)
     Route: 047
     Dates: start: 20120102
  3. BRIMONIDINE TARTRATE [Concomitant]

REACTIONS (3)
  - EYE SWELLING [None]
  - DIABETES MELLITUS [None]
  - OCULAR HYPERAEMIA [None]
